FAERS Safety Report 4315930-9 (Version None)
Quarter: 2004Q1

REPORT INFORMATION
  Report Type: 
  Country: None (occurrence: None)
  Receive Date: 20040310
  Receipt Date: 20040301
  Transmission Date: 20041129
  Serious: Yes (Life-Threatening)
  Sender: FDA-Public Use
  Company Number: 2004AP01233

PATIENT
  Age: 36 Year
  Sex: Male
  Weight: 65 kg

DRUGS (4)
  1. ROPIVACAINE [Suspect]
     Indication: POSTOPERATIVE ANALGESIA
     Dosage: 4.6 MG/KG  IV
     Route: 042
  2. BUPIVACAINE [Suspect]
     Indication: POSTOPERATIVE ANALGESIA
     Dosage: 10 MG ONCE ED
     Route: 008
  3. SUFENTANIL [Suspect]
     Indication: ANAESTHESIA
     Dosage: 5 UG ONCE ED
     Route: 008
  4. CLONIDINE [Suspect]
     Indication: ANAESTHESIA
     Dosage: 50 UG ONCE ED
     Route: 008

REACTIONS (14)
  - ANXIETY [None]
  - BLOOD PRESSURE DECREASED [None]
  - COMA [None]
  - CONFUSIONAL STATE [None]
  - DISORIENTATION [None]
  - DRUG TOXICITY [None]
  - GRAND MAL CONVULSION [None]
  - LOSS OF CONSCIOUSNESS [None]
  - MEDICATION ERROR [None]
  - OVERDOSE [None]
  - PSYCHOMOTOR HYPERACTIVITY [None]
  - RESPIRATORY ARREST [None]
  - SPEECH DISORDER [None]
  - TACHYCARDIA [None]
